FAERS Safety Report 10048082 (Version 1)
Quarter: 2014Q1

REPORT INFORMATION
  Report Type: Spontaneous
  Country: US (occurrence: None)
  Receive Date: 20140327
  Receipt Date: 20140327
  Transmission Date: 20141002
  Serious: Yes (Death, Hospitalization)
  Sender: FDA-Public Use
  Company Number: 2014AP002219

PATIENT
  Age: 39 Year
  Sex: Male

DRUGS (8)
  1. AZITHROMYCIN [Suspect]
     Indication: OPPORTUNISTIC INFECTION PROPHYLAXIS
  2. DAPSONE [Suspect]
     Indication: OPPORTUNISTIC INFECTION PROPHYLAXIS
  3. ETHAMBUTOL [Suspect]
     Indication: OPPORTUNISTIC INFECTION PROPHYLAXIS
  4. VALPROATE SEMISODIUM [Suspect]
     Indication: CONVULSION
  5. TENOFOVIR [Concomitant]
  6. EMTRICITABINE [Concomitant]
  7. KALETRA [Concomitant]
  8. CEFEPIME [Concomitant]

REACTIONS (11)
  - Vanishing bile duct syndrome [None]
  - Multi-organ failure [None]
  - Hyperbilirubinaemia [None]
  - Pancreatitis [None]
  - Lung infiltration [None]
  - Hepatomegaly [None]
  - Pneumonia [None]
  - Haemodialysis [None]
  - Azotaemia [None]
  - Metabolic acidosis [None]
  - Cholestasis [None]
